FAERS Safety Report 7545872-7 (Version None)
Quarter: 2011Q2

REPORT INFORMATION
  Report Type: 
  Country: None (occurrence: None)
  Receive Date: 20110614
  Receipt Date: 20110603
  Transmission Date: 20111010
  Serious: Yes (Death)
  Sender: FDA-Public Use
  Company Number: GB-GENZYME-CLOF-1001641

PATIENT

DRUGS (3)
  1. EVOLTRA [Suspect]
     Indication: ACUTE MYELOID LEUKAEMIA
     Dosage: 40 MG/M2 X 5 DAYS
     Route: 065
  2. CYCLOPHOSPHAMIDE [Suspect]
     Indication: ACUTE MYELOID LEUKAEMIA
     Dosage: 300 OR 440 MG/M2 X 5 DAYS
     Route: 065
  3. ETOPOSIDE [Suspect]
     Indication: ACUTE MYELOID LEUKAEMIA
     Dosage: 100 OR 150 MG/M2 X 5 DAYS
     Route: 065

REACTIONS (1)
  - MULTI-ORGAN FAILURE [None]
